FAERS Safety Report 19806805 (Version 1)
Quarter: 2021Q3

REPORT INFORMATION
  Report Type: Spontaneous
  Country: US (occurrence: US)
  Receive Date: 20210908
  Receipt Date: 20210908
  Transmission Date: 20211014
  Serious: Yes (Life-Threatening)
  Sender: FDA-Public Use
  Company Number: US-AMERICAN REGENT INC-2021001077

PATIENT
  Age: 27 Year
  Sex: Female
  Weight: 81 kg

DRUGS (2)
  1. INJECTAFER [Suspect]
     Active Substance: FERRIC CARBOXYMALTOSE
     Indication: HEAVY MENSTRUAL BLEEDING
     Dosage: 750 MG
     Route: 042
     Dates: start: 20210318, end: 20210318
  2. INJECTAFER [Suspect]
     Active Substance: FERRIC CARBOXYMALTOSE
     Indication: IRON DEFICIENCY ANAEMIA
     Dosage: 750 MG
     Route: 042
     Dates: start: 20210311, end: 20210311

REACTIONS (1)
  - Hypophosphataemia [Unknown]

NARRATIVE: CASE EVENT DATE: 202103
